FAERS Safety Report 20002144 (Version 1)
Quarter: 2021Q4

REPORT INFORMATION
  Report Type: Spontaneous
  Country: US (occurrence: US)
  Receive Date: 20211027
  Receipt Date: 20211027
  Transmission Date: 20220303
  Serious: No
  Sender: FDA-Public Use
  Company Number: US-SA-SAC20211025000167

PATIENT
  Sex: Female

DRUGS (21)
  1. DUPIXENT [Suspect]
     Active Substance: DUPILUMAB
     Indication: Dermatitis atopic
     Dosage: 300 MG, QOW
     Route: 058
  2. MINOCYCLINE HYDROCHLORIDE [Concomitant]
     Active Substance: MINOCYCLINE HYDROCHLORIDE
  3. MOMETASONE FUROATE [Concomitant]
     Active Substance: MOMETASONE FUROATE
  4. MOTRIN IB [Concomitant]
     Active Substance: IBUPROFEN
  5. ZYRTEC [Concomitant]
     Active Substance: CETIRIZINE HYDROCHLORIDE
  6. ALLEGRA D-12 HOUR [Concomitant]
     Active Substance: FEXOFENADINE HYDROCHLORIDE\PSEUDOEPHEDRINE HYDROCHLORIDE
  7. FLULAVAL QUADRIVALENT [Concomitant]
  8. ESTRADIOL / NORETHINDRONE ACETATE [Concomitant]
     Active Substance: ESTRADIOL\NORETHINDRONE ACETATE
  9. OMEPRAZOLE [Concomitant]
     Active Substance: OMEPRAZOLE
  10. SILODOSIN [Concomitant]
     Active Substance: SILODOSIN
  11. LEVEMIR [Concomitant]
     Active Substance: INSULIN DETEMIR
  12. ATORVASTATIN CALCIUM [Concomitant]
     Active Substance: ATORVASTATIN CALCIUM
  13. AMLODIPINE BESYLATE [Concomitant]
     Active Substance: AMLODIPINE BESYLATE
  14. HUMALOG [Concomitant]
     Active Substance: INSULIN LISPRO
  15. TESTOSTERONE [Concomitant]
     Active Substance: TESTOSTERONE
  16. OLMESARTAN [Concomitant]
     Active Substance: OLMESARTAN
  17. INSULIN LISPRO [Concomitant]
     Active Substance: INSULIN LISPRO
  18. NITROFURANTOIN MONOHYDRATE [Concomitant]
     Active Substance: NITROFURANTOIN MONOHYDRATE
  19. ORACEA [DOXYCYCLINE] [Concomitant]
  20. TRI-LO-SPRINTEC [Concomitant]
     Active Substance: ETHINYL ESTRADIOL\NORGESTIMATE
  21. SLYND [Concomitant]
     Active Substance: DROSPIRENONE

REACTIONS (2)
  - Cystitis [Unknown]
  - Rosacea [Unknown]
